FAERS Safety Report 7816547-1 (Version None)
Quarter: 2011Q4

REPORT INFORMATION
  Report Type: 
  Country: None (occurrence: None)
  Receive Date: 20111017
  Receipt Date: 20111011
  Transmission Date: 20120403
  Serious: Yes (Hospitalization, Other)
  Sender: FDA-Public Use
  Company Number: US-PFIZER INC-2011243061

PATIENT
  Sex: Male
  Weight: 76.2 kg

DRUGS (3)
  1. SULFASALAZINE [Suspect]
     Indication: POLYARTHRITIS
     Dosage: 500 MG, 2X/DAY
     Route: 048
  2. ASPIRIN [Suspect]
     Dosage: UNK
  3. SULFASALAZINE [Suspect]
     Dosage: 500 MG, UNK
     Route: 048

REACTIONS (3)
  - HYPOTENSION [None]
  - DRUG HYPERSENSITIVITY [None]
  - VASODILATATION [None]
